FAERS Safety Report 21706378 (Version 1)
Quarter: 2022Q4

REPORT INFORMATION
  Report Type: Spontaneous
  Country: US (occurrence: US)
  Receive Date: 20221209
  Receipt Date: 20221209
  Transmission Date: 20230112
  Serious: No
  Sender: FDA-Public Use
  Company Number: US-PFIZER INC-PV202200119167

PATIENT
  Age: 80 Year

DRUGS (1)
  1. FESOTERODINE [Suspect]
     Active Substance: FESOTERODINE
     Dosage: UNK

REACTIONS (3)
  - Drug ineffective [Unknown]
  - Crying [Unknown]
  - Urinary incontinence [Unknown]
